FAERS Safety Report 17756867 (Version 1)
Quarter: 2020Q2

REPORT INFORMATION
  Report Type: Spontaneous
  Country: JP (occurrence: JP)
  Receive Date: 20200507
  Receipt Date: 20200507
  Transmission Date: 20200714
  Serious: Yes (Hospitalization, Other)
  Sender: FDA-Public Use
  Company Number: JP-009507513-2005JPN000870

PATIENT
  Age: 34 Year
  Sex: Female

DRUGS (14)
  1. PARIET [Suspect]
     Active Substance: RABEPRAZOLE SODIUM
     Dosage: 10 MG, 1X/DAY AFTER BREAKFAST
     Route: 048
  2. LYRICA [Concomitant]
     Active Substance: PREGABALIN
     Dosage: 75 MG, 2X/DAY AFTER LUNCH AND
     Route: 048
  3. REGNITE [Concomitant]
     Active Substance: GABAPENTIN ENACARBIL
     Dosage: 600 MG, 1X/DAY AFTER DINNER
     Route: 048
  4. ENDOXAN [Suspect]
     Active Substance: CYCLOPHOSPHAMIDE
     Indication: FIBROMYALGIA
     Dosage: 50 MG, 2X/WEEK AFTER BREAKFAST ON MONDAY AND TUESDAY
     Route: 048
  5. GASCON (DIMETHICONE) [Concomitant]
     Active Substance: DIMETHICONE
     Dosage: 40 MG, 2X/DAY AFTER BREAKFAST AND DINNER
     Route: 048
  6. REFLEX [Suspect]
     Active Substance: MIRTAZAPINE
     Dosage: 15 MG, 1X/DAY BEFORE BEDTIME
     Route: 048
  7. AZULFIDINE EN-TABS [Suspect]
     Active Substance: SULFASALAZINE
     Indication: ENTHESOPATHY
     Dosage: 500 MG, 2X/DAY AFTER BREAKFAST AND DINNER
     Route: 048
  8. LYRICA [Concomitant]
     Active Substance: PREGABALIN
     Dosage: 150 MG, 1X/DAY AFTER DINNER
  9. SALAGEN [Concomitant]
     Active Substance: PILOCARPINE HYDROCHLORIDE
     Dosage: 5 MG, 1X/DAY AFTER BREAKFAST
     Route: 048
  10. CYMBALTA [Suspect]
     Active Substance: DULOXETINE HYDROCHLORIDE
     Dosage: 60 MG, 1X/DAY AFTER DINNER
     Route: 048
  11. LYRICA [Concomitant]
     Active Substance: PREGABALIN
     Dosage: 25 MG, 1X/DAY AFTER BREAKFAST
     Route: 048
  12. PREDONINE [Concomitant]
     Active Substance: PREDNISOLONE
     Dosage: 5 MG, 1X/DAY AFTER BREAKFAST
     Route: 048
  13. BI SIFROL [Concomitant]
     Active Substance: PRAMIPEXOLE
     Dosage: 0.125 MG, 1X/DAY BEFORE BEDTIME
     Route: 048
  14. SOLANAX [Concomitant]
     Active Substance: ALPRAZOLAM
     Dosage: 0.4 MG, 3X/DAY AFTER EVERY MEAL
     Route: 048

REACTIONS (3)
  - Haemophagocytic lymphohistiocytosis [Recovering/Resolving]
  - Off label use [Recovered/Resolved]
  - Stevens-Johnson syndrome [Unknown]

NARRATIVE: CASE EVENT DATE: 20140705
